FAERS Safety Report 6723928-6 (Version None)
Quarter: 2010Q2

REPORT INFORMATION
  Report Type: 
  Country: None (occurrence: None)
  Receive Date: 20100513
  Receipt Date: 20100428
  Transmission Date: 20101027
  Serious: Yes (Hospitalization)
  Sender: FDA-Public Use
  Company Number: DE-AMGEN-QUU410590

PATIENT
  Sex: Female

DRUGS (3)
  1. ENBREL [Suspect]
     Indication: RHEUMATOID ARTHRITIS
     Route: 058
     Dates: start: 20090907, end: 20100201
  2. ARAVA [Suspect]
     Indication: RHEUMATOID ARTHRITIS
     Route: 048
     Dates: end: 20100101
  3. PREDNISOLONE [Concomitant]
     Route: 048

REACTIONS (3)
  - PLEURAL DISORDER [None]
  - PNEUMONITIS [None]
  - SARCOIDOSIS [None]
